FAERS Safety Report 4824650-3 (Version None)
Quarter: 2005Q4

REPORT INFORMATION
  Report Type: 
  Country: None (occurrence: None)
  Receive Date: 20051108
  Receipt Date: 20051026
  Transmission Date: 20060501
  Serious: Yes (Other)
  Sender: FDA-Public Use
  Company Number: 2005147349

PATIENT
  Sex: Female

DRUGS (2)
  1. GABAPENTIN [Suspect]
     Indication: HEADACHE
     Dosage: UNKNOWN
     Route: 065
     Dates: start: 20051001, end: 20051011
  2. PROPRANOLOL [Concomitant]

REACTIONS (4)
  - DISORIENTATION [None]
  - DYSPHASIA [None]
  - ILLUSION [None]
  - VISUAL DISTURBANCE [None]
